FAERS Safety Report 23723403 (Version 1)
Quarter: 2024Q2

REPORT INFORMATION
  Report Type: Spontaneous
  Country: PL (occurrence: PL)
  Receive Date: 20240409
  Receipt Date: 20240409
  Transmission Date: 20240716
  Serious: Yes (Hospitalization, Other)
  Sender: FDA-Public Use
  Company Number: PL-BRISTOL-MYERS SQUIBB COMPANY-2024-055759

PATIENT
  Age: 72 Year
  Sex: Female

DRUGS (1)
  1. NIVOLUMAB [Suspect]
     Active Substance: NIVOLUMAB
     Indication: Malignant melanoma
     Dosage: DOSE : 480 MG;     FREQ : EVERY 4 WEEKS

REACTIONS (5)
  - Eyelid ptosis [Unknown]
  - Hyperthyroidism [Unknown]
  - Autoimmune myositis [Unknown]
  - Autoimmune hepatitis [Unknown]
  - Autoimmune myocarditis [Unknown]
